FAERS Safety Report 8828570 (Version 2)
Quarter: 2013Q1

REPORT INFORMATION
  Report Type: Spontaneous
  Country: US (occurrence: US)
  Receive Date: 20121005
  Receipt Date: 20130214
  Transmission Date: 20140127
  Serious: Yes (Other)
  Sender: FDA-Public Use
  Company Number: US-ROCHE-1134550

PATIENT
  Sex: Male

DRUGS (13)
  1. RITUXAN [Suspect]
     Indication: CHRONIC LYMPHOCYTIC LEUKAEMIA
     Route: 065
     Dates: start: 200104, end: 200108
  2. CELLCEPT [Suspect]
     Indication: PROPHYLAXIS AGAINST GRAFT VERSUS HOST DISEASE
     Route: 065
  3. FLUDARA [Concomitant]
     Route: 065
     Dates: start: 199910, end: 200005
  4. FLUDARA [Concomitant]
     Route: 065
     Dates: start: 200105, end: 200108
  5. CYTOXAN [Concomitant]
     Route: 065
     Dates: start: 200105, end: 200108
  6. LEUCOVORIN [Concomitant]
  7. METHOTREXATE [Concomitant]
     Route: 037
  8. METHOTREXATE [Concomitant]
     Route: 037
  9. BUSULFAN [Concomitant]
  10. ATG [Concomitant]
  11. URSODIOL [Concomitant]
     Indication: PROPHYLAXIS
  12. TACROLIMUS [Concomitant]
     Indication: PROPHYLAXIS AGAINST GRAFT VERSUS HOST DISEASE
  13. NEUPOGEN [Concomitant]

REACTIONS (8)
  - Thrombocytopenia [Unknown]
  - Neutropenia [Unknown]
  - Dyspepsia [Unknown]
  - Cough [Unknown]
  - Anaemia [Unknown]
  - Pyrexia [Unknown]
  - Weight decreased [Unknown]
  - Abdominal discomfort [Unknown]
